FAERS Safety Report 7176307-4 (Version None)
Quarter: 2010Q4

REPORT INFORMATION
  Report Type: 
  Country: None (occurrence: None)
  Receive Date: 20101220
  Receipt Date: 20101207
  Transmission Date: 20110411
  Serious: No
  Sender: FDA-Public Use
  Company Number: US-PFIZER INC-2010167187

PATIENT
  Age: 48 Year
  Sex: Female
  Weight: 58.9 kg

DRUGS (1)
  1. ADVIL LIQUI-GELS [Suspect]
     Indication: BACK PAIN
     Dosage: 2 DF, 1X/DAY
     Route: 048
     Dates: end: 20101207

REACTIONS (1)
  - DRUG EFFECT DECREASED [None]
